FAERS Safety Report 9361487 (Version 1)
Quarter: 2013Q2

REPORT INFORMATION
  Report Type: Spontaneous
  Country: US (occurrence: US)
  Receive Date: 20130621
  Receipt Date: 20130621
  Transmission Date: 20140414
  Serious: Yes (Death, Hospitalization)
  Sender: FDA-Public Use
  Company Number: US-JNJFOC-20130607248

PATIENT
  Age: 78 Year
  Sex: Male

DRUGS (4)
  1. DOXORUBICIN [Suspect]
     Indication: OSTEOSARCOMA
     Route: 042
  2. CARBOPLATIN [Suspect]
     Indication: OSTEOSARCOMA
     Route: 065
  3. METHOTREXATE [Suspect]
     Indication: OSTEOSARCOMA
     Route: 065
  4. METHOTREXATE [Suspect]
     Indication: OSTEOSARCOMA
     Route: 065

REACTIONS (12)
  - Death [Fatal]
  - Haematoma [Unknown]
  - Haematuria [Unknown]
  - Delirium [Unknown]
  - Depression [Unknown]
  - Pelvic abscess [Unknown]
  - Urinary tract infection [Unknown]
  - Atrial fibrillation [Unknown]
  - Upper gastrointestinal haemorrhage [Unknown]
  - Osteosarcoma recurrent [Unknown]
  - Fluid overload [Unknown]
  - Off label use [Unknown]
